FAERS Safety Report 8788726 (Version 2)
Quarter: 2012Q4

REPORT INFORMATION
  Report Type: 
  Country: US (occurrence: US)
  Receive Date: 20120917
  Receipt Date: 20121026
  Transmission Date: 20130627
  Serious: Yes (Other)
  Sender: FDA-Public Use
  Company Number: US-AMGEN-USASP2012058029

PATIENT
  Age: 55 Year
  Sex: Female
  Weight: 75 kg

DRUGS (24)
  1. ENBREL [Suspect]
     Indication: RHEUMATOID ARTHRITIS
     Dosage: 50 mg, qwk
     Route: 058
     Dates: start: 20100816, end: 20120910
  2. ATIVAN [Concomitant]
     Dosage: 1 mg, prn
     Route: 048
  3. CALCIUM D                          /00944201/ [Concomitant]
     Dosage: bid
  4. FIORICET [Concomitant]
     Dosage: 50-325-40 mg
     Route: 048
     Dates: start: 20120418
  5. FLEXERIL                           /00428402/ [Concomitant]
     Dosage: 10 mg, 1 tablet at bedtime
     Route: 048
  6. FOLIC ACID [Concomitant]
     Dosage: 1 tablet daily
     Route: 048
  7. FUROSEMIDE [Concomitant]
     Dosage: 20 mg, 1 tablet daily as directed
     Route: 048
  8. GABAPENTIN [Concomitant]
     Dosage: 300 mg q qm, 600mg q noon, and 900mg HS
     Route: 048
  9. HEPARIN [Concomitant]
     Dosage: 100 unit/ml
     Route: 042
     Dates: start: 20120220
  10. LIDODERM [Concomitant]
     Dosage: 5 %, prn
  11. METOCLOPRAMIDEMONOHYDROCHLORIDE ACCORD [Concomitant]
     Dosage: 10 mg, (i tablet 4 times daily)
     Route: 048
  12. NABUMETONE [Concomitant]
     Dosage: 500 mg, (2 po bid)
     Route: 048
     Dates: start: 20100322
  13. NEXIUM                             /01479302/ [Concomitant]
     Dosage: 40 mg, (one capsule by mouth every day)
     Route: 048
     Dates: start: 20120718
  14. OXYCODONE [Concomitant]
     Dosage: 5 mg, )15 mg Q 6 hours and PRN)
     Route: 048
  15. OXYCONTIN [Concomitant]
     Dosage: 10 mg, (2 tablets every 12 hours)
     Route: 048
  16. PHENERGAN                          /00033001/ [Concomitant]
     Dosage: 25 mg, (1 tablet every 4 to 6 hours as needed for nausea)
  17. POTASSIUM CHLORIDE [Concomitant]
     Dosage: UNK
  18. PREDNISONE [Concomitant]
     Dosage: 5 mg, (2 tablets daily)
     Route: 048
     Dates: start: 20120917
  19. PRENATAL PLUS IRON [Concomitant]
     Dosage: 1 tablet bid
  20. PROAIR HFA [Concomitant]
     Dosage: UNK
     Dates: start: 20100524
  21. TRAZODONE HCL [Concomitant]
     Dosage: 100 mg, (2 tablets at bed time)
     Route: 048
  22. ZOFRAN                             /00955301/ [Concomitant]
     Dosage: 8 mg, q12h
  23. ZOLOFT [Concomitant]
     Dosage: 100 mg, (take 1 and 1/2 tablets at bedtime)
     Route: 048
  24. ZOLPIDEM TARTRATE [Concomitant]
     Dosage: 10 mg, (take 1 tablet daily at bedtime)
     Route: 048

REACTIONS (1)
  - Breast cancer [Unknown]
